FAERS Safety Report 7424672-2 (Version None)
Quarter: 2011Q2

REPORT INFORMATION
  Report Type: 
  Country: None (occurrence: None)
  Receive Date: 20110419
  Receipt Date: 20100817
  Transmission Date: 20111010
  Serious: Yes (Hospitalization, Other)
  Sender: FDA-Public Use
  Company Number: US-BAYER-201028000NA

PATIENT
  Age: 37 Year
  Sex: Female
  Weight: 93.424 kg

DRUGS (26)
  1. PHENERGAN [Concomitant]
  2. VICODIN [Concomitant]
  3. NITRONIDAZOLE [Concomitant]
     Dosage: 500 MG, UNK
     Route: 048
  4. YASMIN [Suspect]
     Indication: CONTRACEPTION
     Dosage: UNK UNK, QD
     Route: 048
     Dates: start: 20020101, end: 20100101
  5. YASMIN [Suspect]
  6. HYDROCODONE BITARTRATE AND ACETAMINOPHEN [Concomitant]
     Route: 048
  7. ERYTHROMYCIN [Concomitant]
     Dosage: 2 %, UNK
     Route: 048
  8. LORAZEPAM [Concomitant]
     Dosage: 0.5 MG, UNK
     Route: 048
  9. FLAGYL [Concomitant]
  10. FLUCONAZOLE [Concomitant]
     Dosage: 150 MG, UNK
     Route: 048
  11. DIETARY SUPPLEMENTS [Concomitant]
  12. YAZ [Suspect]
  13. YASMIN [Suspect]
     Indication: PREMENSTRUAL SYNDROME
  14. AMOXICILLIN [Concomitant]
     Dosage: 500 MG, UNK
     Route: 048
  15. CEPHALEXIN [Concomitant]
     Dosage: 500 MG, UNK
     Route: 048
  16. SYMBYAX [Concomitant]
     Dosage: UNK
     Route: 048
  17. YAZ [Suspect]
     Indication: PREMENSTRUAL SYNDROME
  18. BACTRIN [Concomitant]
  19. DIFLUCAN [Concomitant]
  20. PROMETHAZINE [Concomitant]
     Dosage: 25 MG, UNK
     Route: 048
  21. MICROGESTIN FE 1.5/30 [Concomitant]
     Dosage: UNK UNK, QD
     Route: 048
     Dates: start: 20100120
  22. PEG-3350 AND ELECTROLYTES [Concomitant]
     Dosage: UNK
     Dates: start: 20080811
  23. YAZ [Suspect]
     Indication: CONTRACEPTION
     Dosage: UNK UNK, QD
     Route: 048
     Dates: start: 20020101, end: 20100101
  24. PROTONIX [Concomitant]
     Indication: GASTROOESOPHAGEAL REFLUX DISEASE
     Dosage: 40 MG, UNK
     Route: 048
     Dates: start: 20060601
  25. SULFAMETHOXAZOLE [Concomitant]
     Route: 048
  26. TETRACYCLINE [Concomitant]
     Dosage: 500 MG, UNK
     Route: 048

REACTIONS (12)
  - DIZZINESS [None]
  - FATIGUE [None]
  - CHOLELITHIASIS [None]
  - GALLBLADDER DISORDER [None]
  - CHEST PAIN [None]
  - HAEMORRHAGE [None]
  - ABDOMINAL PAIN LOWER [None]
  - WEIGHT LOSS POOR [None]
  - NAUSEA [None]
  - ANXIETY [None]
  - CHOLECYSTITIS ACUTE [None]
  - METRORRHAGIA [None]
